FAERS Safety Report 6892625-9 (Version None)
Quarter: 2010Q3

REPORT INFORMATION
  Report Type: 
  Country: None (occurrence: None)
  Receive Date: 20100731
  Receipt Date: 20080731
  Transmission Date: 20110219
  Serious: No
  Sender: FDA-Public Use
  Company Number: US-PFIZER INC-2008064860

PATIENT
  Age: 27 Year
  Sex: Male

DRUGS (1)
  1. NEURONTIN [Suspect]
     Indication: MUSCULOSKELETAL PAIN
     Dates: start: 20080601

REACTIONS (1)
  - DRUG INEFFECTIVE FOR UNAPPROVED INDICATION [None]
